FAERS Safety Report 23479533 (Version 2)
Quarter: 2024Q2

REPORT INFORMATION
  Report Type: Spontaneous
  Country: IT (occurrence: IT)
  Receive Date: 20240205
  Receipt Date: 20240408
  Transmission Date: 20240716
  Serious: Yes (Other)
  Sender: FDA-Public Use
  Company Number: None

PATIENT
  Age: 70 Year
  Sex: Female

DRUGS (7)
  1. XARELTO [Suspect]
     Active Substance: RIVAROXABAN
     Indication: Atrial fibrillation
     Dosage: 20 MG
     Route: 048
  2. LASIX [Concomitant]
     Active Substance: FUROSEMIDE
     Dosage: LASIX*30CPR 25MG  1 CP/DIE
     Route: 048
     Dates: start: 2023
  3. LOSARTAN DOC [Concomitant]
     Dosage: LOSARTAN DOC*21CPR RIV 12,5MG  1 CP/DIE
     Route: 048
     Dates: start: 2023
  4. BISOPROLOL [Concomitant]
     Active Substance: BISOPROLOL\BISOPROLOL FUMARATE
     Dosage: CARDICOR*28CPR RIV 2,5MG  1 CP/DIE
     Route: 048
     Dates: start: 2023
  5. CANRENONE [Concomitant]
     Active Substance: CANRENONE
     Dosage: LUVION*40CPR 50MG  1 CP/DIE
     Route: 048
     Dates: start: 2023
  6. LANOXIN [Concomitant]
     Active Substance: DIGOXIN
     Dosage: LANOXIN*30CPR 0,125MG  1 CP/DIE
     Route: 048
     Dates: start: 2023
  7. JARDIANCE [Concomitant]
     Active Substance: EMPAGLIFLOZIN
     Dosage: JARDIANCE*28CPR RIV 10MG 1 CP/DIE
     Route: 048
     Dates: start: 202207

REACTIONS (3)
  - Renal failure [Recovered/Resolved]
  - Glomerular filtration rate decreased [Recovered/Resolved]
  - Blood creatinine increased [Recovered/Resolved]

NARRATIVE: CASE EVENT DATE: 20230801
